FAERS Safety Report 4639072-8 (Version None)
Quarter: 2005Q2

REPORT INFORMATION
  Report Type: 
  Country: None (occurrence: None)
  Receive Date: 20050419
  Receipt Date: 20050411
  Transmission Date: 20051028
  Serious: Yes (Hospitalization)
  Sender: FDA-Public Use
  Company Number: DE-JNJFOC-20050303719

PATIENT
  Sex: Male
  Weight: 53 kg

DRUGS (7)
  1. DURAGESIC-100 [Suspect]
     Indication: PAIN
     Route: 062
  2. DURAGESIC-100 [Suspect]
     Indication: PAIN
     Route: 062
  3. SORTIS [Concomitant]
     Route: 049
  4. ASPIRIN [Concomitant]
     Route: 049
  5. METOCLOPRAMIDE [Concomitant]
     Dosage: AS NEEDED
     Route: 049
  6. ATOSIL [Concomitant]
     Dosage: AS NEEDED
     Route: 049
  7. PLAVIX [Concomitant]
     Route: 049

REACTIONS (2)
  - ERUCTATION [None]
  - FLATULENCE [None]
